FAERS Safety Report 13430004 (Version 1)
Quarter: 2017Q2

REPORT INFORMATION
  Report Type: Spontaneous
  Country: US (occurrence: US)
  Receive Date: 20170411
  Receipt Date: 20170411
  Transmission Date: 20170830
  Serious: No
  Sender: FDA-Public Use
  Company Number: None

PATIENT
  Age: 54 Year
  Sex: Female

DRUGS (8)
  1. VITAMIN D [Concomitant]
     Active Substance: CHOLECALCIFEROL
  2. ORAJEL DRY MOUTH MOISTRUIZING [Suspect]
     Active Substance: GLYCERIN
     Indication: DRY MOUTH
     Dosage: ?          QUANTITY:1 TUBE;OTHER ROUTE:APPLIED TO TONGUE AND CHEEKS INSIDE MOUT?
     Dates: end: 20170407
  3. MULTI VITAMIN [Concomitant]
     Active Substance: VITAMINS
  4. VIT B [Concomitant]
     Active Substance: VITAMIN B
  5. CALCIUM CITRATE [Concomitant]
     Active Substance: CALCIUM CITRATE
  6. LEVOTHYROXIN [Concomitant]
     Active Substance: LEVOTHYROXINE
  7. OMEPRAZOLE. [Concomitant]
     Active Substance: OMEPRAZOLE
  8. FUROSEMIDE. [Concomitant]
     Active Substance: FUROSEMIDE

REACTIONS (2)
  - Oral mucosal exfoliation [None]
  - Chemical burn [None]

NARRATIVE: CASE EVENT DATE: 20170407
